FAERS Safety Report 17145539 (Version 2)
Quarter: 2019Q4

REPORT INFORMATION
  Report Type: Spontaneous
  Country: BA (occurrence: BA)
  Receive Date: 20191212
  Receipt Date: 20191228
  Transmission Date: 20200122
  Serious: Yes (Hospitalization, Other)
  Sender: FDA-Public Use
  Company Number: BA-ABBVIE-19K-211-3186378-00

PATIENT
  Age: 11 Year
  Sex: Male

DRUGS (1)
  1. HUMIRA [Suspect]
     Active Substance: ADALIMUMAB
     Indication: JUVENILE IDIOPATHIC ARTHRITIS
     Route: 058
     Dates: start: 201910, end: 20191202

REACTIONS (4)
  - Guillain-Barre syndrome [Recovering/Resolving]
  - Gait disturbance [Not Recovered/Not Resolved]
  - Nasopharyngitis [Unknown]
  - Nervous system disorder [Not Recovered/Not Resolved]

NARRATIVE: CASE EVENT DATE: 201912
